FAERS Safety Report 4592901-9 (Version None)
Quarter: 2005Q1

REPORT INFORMATION
  Report Type: 
  Country: None (occurrence: None)
  Receive Date: 20050125
  Receipt Date: 20040830
  Transmission Date: 20050727
  Serious: No
  Sender: FDA-Public Use
  Company Number: USA040876257

PATIENT
  Age: 79 Year
  Sex: Female
  Weight: 57 kg

DRUGS (5)
  1. FORTEO [Suspect]
     Indication: OSTEOPOROSIS
     Dates: start: 20040823, end: 20040827
  2. CALCIUM PLUS D [Concomitant]
  3. MULTIVITAMIN [Concomitant]
  4. VITAMIN E [Concomitant]
  5. NEXIUM [Concomitant]

REACTIONS (7)
  - ARTHRALGIA [None]
  - DIZZINESS [None]
  - DYSPNOEA [None]
  - HEART RATE INCREASED [None]
  - INJECTION SITE ERYTHEMA [None]
  - PAIN [None]
  - RASH [None]
